FAERS Safety Report 25316620 (Version 3)
Quarter: 2025Q2

REPORT INFORMATION
  Report Type: Spontaneous
  Country: US (occurrence: US)
  Receive Date: 20250515
  Receipt Date: 20250623
  Transmission Date: 20250716
  Serious: Yes (Hospitalization)
  Sender: BRAINTREE
  Company Number: US-BRAINTREE LABORATORIES, INC.-2025BTE00291

PATIENT
  Age: 80 Year
  Sex: Female
  Weight: 63.492 kg

DRUGS (10)
  1. GOLYTELY [Suspect]
     Active Substance: POLYETHYLENE GLYCOL 3350\POTASSIUM CHLORIDE\SODIUM BICARBONATE\SODIUM CHLORIDE\SODIUM SULFATE
     Indication: Colonoscopy
     Route: 048
     Dates: start: 20250204, end: 20250205
  2. CHLORTHALIDONE [Suspect]
     Active Substance: CHLORTHALIDONE
     Dates: end: 20250206
  3. WARFARIN [Concomitant]
     Active Substance: WARFARIN
  4. INDAPAMIDE [Concomitant]
     Active Substance: INDAPAMIDE
  5. LISINOPRIL [Concomitant]
     Active Substance: LISINOPRIL
     Dosage: 2.5 MG, 1X/DAY
     Route: 048
     Dates: start: 20250131
  6. MAGNESIUM OXIDE [Concomitant]
     Active Substance: MAGNESIUM OXIDE
     Dosage: 400 MG, 1X/DAY
     Route: 048
  7. ESTRACE [Concomitant]
     Active Substance: ESTRADIOL
     Dosage: 1 G, 2X/WEEK
     Route: 067
     Dates: start: 20241114
  8. ATIVAN [Concomitant]
     Active Substance: LORAZEPAM
     Route: 048
     Dates: start: 20241022
  9. DOCUSATE SODIUM AND SENNA [Concomitant]
     Active Substance: DOCUSATE SODIUM\SENNOSIDES
     Dosage: 1 TABLETS, 1X/DAY
     Route: 048
  10. KLOR-CON M20 [Concomitant]
     Active Substance: POTASSIUM CHLORIDE
     Dates: end: 202502

REACTIONS (21)
  - Atrial fibrillation [Recovered/Resolved]
  - Metabolic encephalopathy [Recovered/Resolved]
  - Hyponatraemia [Recovered/Resolved]
  - Hypokalaemia [Recovered/Resolved]
  - Hypomagnesaemia [Recovered/Resolved]
  - Essential hypertension [Recovering/Resolving]
  - Cerebral artery stenosis [Not Recovered/Not Resolved]
  - Dehydration [Recovered/Resolved]
  - Inappropriate antidiuretic hormone secretion [Recovered/Resolved]
  - Memory impairment [Unknown]
  - Fatigue [Unknown]
  - Feeling abnormal [Recovered/Resolved]
  - Blood bilirubin increased [Recovered/Resolved]
  - Asthenia [Not Recovered/Not Resolved]
  - Balance disorder [Recovered/Resolved]
  - Aphasia [Recovered/Resolved]
  - Anxiety [Recovered/Resolved]
  - Pain in extremity [Not Recovered/Not Resolved]
  - Vomiting [Recovered/Resolved]
  - Nausea [Recovered/Resolved]
  - Tremor [Recovered/Resolved]

NARRATIVE: CASE EVENT DATE: 20250201
